FAERS Safety Report 22036608 (Version 1)
Quarter: 2023Q1

REPORT INFORMATION
  Report Type: Spontaneous
  Country: US (occurrence: None)
  Receive Date: 20230223
  Receipt Date: 20230223
  Transmission Date: 20230418
  Serious: Yes (Hospitalization)
  Sender: FDA-Public Use
  Company Number: None

PATIENT
  Sex: Female

DRUGS (1)
  1. COPAXONE [Suspect]
     Active Substance: GLATIRAMER ACETATE
     Indication: Multiple sclerosis
     Dosage: 40MG THREE TIMES PER WEEK SUBQ
     Route: 058
     Dates: start: 202207

REACTIONS (3)
  - Nephrolithiasis [None]
  - Cardiac disorder [None]
  - Pruritus [None]
